FAERS Safety Report 15762120 (Version 1)
Quarter: 2018Q4

REPORT INFORMATION
  Report Type: Not Available
  Country: US (occurrence: US)
  Receive Date: 20181226
  Receipt Date: 20181226
  Transmission Date: 20190205
  Serious: No
  Sender: FDA-Public Use
  Company Number: US-NEUROCRINE BIOSCIENCES INC.-2018NBI03555

PATIENT
  Age: 80 Year
  Sex: Female

DRUGS (6)
  1. INGREZZA [Suspect]
     Active Substance: VALBENAZINE
     Indication: TARDIVE DYSKINESIA
     Route: 048
     Dates: start: 20181205, end: 20181207
  2. CLONAZEPAM. [Concomitant]
     Active Substance: CLONAZEPAM
  3. LANTUS [Concomitant]
     Active Substance: INSULIN GLARGINE
  4. TEMAZEPAM. [Concomitant]
     Active Substance: TEMAZEPAM
  5. METOPROLOL. [Concomitant]
     Active Substance: METOPROLOL
  6. TRAZODONE [Concomitant]
     Active Substance: TRAZODONE HYDROCHLORIDE

REACTIONS (1)
  - Fall [Unknown]

NARRATIVE: CASE EVENT DATE: 201812
